FAERS Safety Report 19100951 (Version 1)
Quarter: 2021Q2

REPORT INFORMATION
  Report Type: Spontaneous
  Country: CN (occurrence: CN)
  Receive Date: 20210407
  Receipt Date: 20210407
  Transmission Date: 20210717
  Serious: Yes (Hospitalization, Other)
  Sender: FDA-Public Use
  Company Number: CN-ASTRAZENECA-2021A225362

PATIENT
  Age: 28029 Day
  Sex: Female
  Weight: 66 kg

DRUGS (3)
  1. BUDESONIDE. [Suspect]
     Active Substance: BUDESONIDE
     Indication: ASTHMA
     Route: 055
     Dates: start: 20210302, end: 20210302
  2. BUDESONIDE. [Suspect]
     Active Substance: BUDESONIDE
     Indication: INFLAMMATION
     Route: 055
     Dates: start: 20210302, end: 20210302
  3. COMPOUND IPRATROPIUM BROMIDE [Concomitant]
     Active Substance: IPRATROPIUM BROMIDE
     Indication: OBSTRUCTIVE AIRWAYS DISORDER
     Route: 048
     Dates: start: 20210302, end: 20210302

REACTIONS (7)
  - Tremor [Recovering/Resolving]
  - Pyrexia [Recovering/Resolving]
  - Dizziness [Recovering/Resolving]
  - Palpitations [Recovering/Resolving]
  - Drug hypersensitivity [Recovered/Resolved]
  - Chills [Recovering/Resolving]
  - Lacunar infarction [Unknown]

NARRATIVE: CASE EVENT DATE: 20210302
